FAERS Safety Report 12623568 (Version 1)
Quarter: 2016Q3

REPORT INFORMATION
  Report Type: Spontaneous
  Country: AU (occurrence: AU)
  Receive Date: 20160804
  Receipt Date: 20160804
  Transmission Date: 20161109
  Serious: Yes (Other)
  Sender: FDA-Public Use
  Company Number: AU-ASTRAZENECA-2016SE83367

PATIENT
  Age: 78 Year
  Sex: Male

DRUGS (6)
  1. CLARITHROMYCIN. [Concomitant]
     Active Substance: CLARITHROMYCIN
  2. LISINOPRIL. [Concomitant]
     Active Substance: LISINOPRIL
  3. CANDESARTAN HYDROCHLOROTHIAZIDE [Suspect]
     Active Substance: CANDESARTAN CILEXETIL\HYDROCHLOROTHIAZIDE
     Route: 048
  4. COLCHICINE. [Concomitant]
     Active Substance: COLCHICINE
  5. AMLODIPINE [Concomitant]
     Active Substance: AMLODIPINE BESYLATE
  6. FRUSEMIDE [Concomitant]
     Active Substance: FUROSEMIDE

REACTIONS (3)
  - Neutropenic sepsis [Unknown]
  - Multiple organ dysfunction syndrome [Unknown]
  - Bone marrow failure [Unknown]
